FAERS Safety Report 19869602 (Version 1)
Quarter: 2021Q3

REPORT INFORMATION
  Report Type: Spontaneous
  Country: CN (occurrence: CN)
  Receive Date: 20210922
  Receipt Date: 20210922
  Transmission Date: 20211014
  Serious: Yes (Hospitalization)
  Sender: FDA-Public Use
  Company Number: CN-WOODWARD-2021-CN-000294

PATIENT
  Age: 37 Year
  Sex: Male
  Weight: 70 kg

DRUGS (4)
  1. ASPIRIN. [Concomitant]
     Active Substance: ASPIRIN
     Dosage: 100 MG, 1 D
     Route: 065
     Dates: start: 20210216, end: 20210909
  2. ACIPHEX [Suspect]
     Active Substance: RABEPRAZOLE SODIUM
     Indication: GASTROINTESTINAL DISORDER
     Dosage: 10 MG,ONCE DAILY
     Route: 048
     Dates: start: 20210216, end: 20210718
  3. ATORVASTATIN CALCIUM. [Suspect]
     Active Substance: ATORVASTATIN CALCIUM
     Dosage: 20 MG,1 D
     Route: 048
     Dates: start: 20210216, end: 20210718
  4. TICAGRELOR. [Concomitant]
     Active Substance: TICAGRELOR
     Dosage: 90 MG,12 HR
     Route: 065
     Dates: start: 20210216, end: 20210909

REACTIONS (3)
  - Dyspnoea [Unknown]
  - Hepatic function abnormal [Recovered/Resolved]
  - Blood glucose increased [Unknown]

NARRATIVE: CASE EVENT DATE: 20210717
